FAERS Safety Report 4968612-4 (Version None)
Quarter: 2006Q2

REPORT INFORMATION
  Report Type: 
  Country: None (occurrence: None)
  Receive Date: 20060405
  Receipt Date: 20060323
  Transmission Date: 20061013
  Serious: Yes (Hospitalization)
  Sender: FDA-Public Use
  Company Number: 222535

PATIENT
  Age: 71 Year
  Sex: Male

DRUGS (3)
  1. MABTHERA (RITUXIMAB)CONC FOR SOLUTION FOR INFUSION [Suspect]
     Indication: CHRONIC LYMPHOCYTIC LEUKAEMIA
     Dosage: 500 MG/M2, 1/MONTH, INTRAVENOUS
     Route: 042
     Dates: start: 20051018
  2. CYCLOPHOSPHAMIDE [Suspect]
     Indication: CHRONIC LYMPHOCYTIC LEUKAEMIA
     Dosage: 250 MG/M2, INTRAVENOUS
     Route: 042
     Dates: start: 20051019
  3. FLUDARABINE [Suspect]
     Indication: CHRONIC LYMPHOCYTIC LEUKAEMIA
     Dosage: 25 MG/M2, INTRAVENOUS
     Route: 042
     Dates: start: 20051019

REACTIONS (1)
  - CEREBRAL TOXOPLASMOSIS [None]
